FAERS Safety Report 14913539 (Version 1)
Quarter: 2018Q2

REPORT INFORMATION
  Report Type: Spontaneous
  Country: TW (occurrence: TW)
  Receive Date: 20180518
  Receipt Date: 20180518
  Transmission Date: 20180711
  Serious: Yes (Hospitalization)
  Sender: FDA-Public Use
  Company Number: TW-ABBVIE-18K-153-2358853-00

PATIENT
  Age: 73 Year
  Sex: Female

DRUGS (2)
  1. ARITHYROMYCIN (ERYTHROMYCIN) [Suspect]
     Active Substance: ERYTHROMYCIN
     Indication: INFECTION
     Route: 065
  2. ADALIMUMAB [Suspect]
     Active Substance: ADALIMUMAB
     Indication: RHEUMATOID ARTHRITIS
     Route: 058

REACTIONS (5)
  - Pneumonia [Recovering/Resolving]
  - Diarrhoea [Unknown]
  - Infection [Unknown]
  - C-reactive protein increased [Unknown]
  - Rales [Unknown]

NARRATIVE: CASE EVENT DATE: 2018
